FAERS Safety Report 7866433-6 (Version None)
Quarter: 2011Q4

REPORT INFORMATION
  Report Type: 
  Country: None (occurrence: None)
  Receive Date: 20111028
  Receipt Date: 20110616
  Transmission Date: 20120403
  Serious: No
  Sender: FDA-Public Use
  Company Number: US-GLAXOSMITHKLINE-A0931734A

PATIENT
  Age: 83 Year
  Sex: Male

DRUGS (18)
  1. MESTINON [Concomitant]
  2. CENTRUM SILVER [Concomitant]
  3. ADVAIR DISKUS 100/50 [Suspect]
     Indication: ASTHMA
     Dosage: 1PUFF TWICE PER DAY
     Route: 055
     Dates: start: 20010101
  4. LIPITOR [Concomitant]
  5. CHLORTHALIDONE [Concomitant]
  6. MELATONIN [Concomitant]
  7. MAGNESIUM OXIDE [Concomitant]
  8. ASPIRIN [Concomitant]
  9. PROTONIX [Concomitant]
  10. POTASSIUM CHLORIDE [Concomitant]
  11. NAC 600 [Concomitant]
  12. PROPAFENONE HCL [Concomitant]
  13. ZOLOFT [Concomitant]
  14. IRON SUPPLEMENT [Concomitant]
  15. PREDNISONE [Concomitant]
  16. IMURAN [Concomitant]
  17. CYANOCOBALAMIN [Concomitant]
  18. OYSTER SHELL CALCIUM + VITAMIN D [Concomitant]

REACTIONS (4)
  - OROPHARYNGEAL DISCOMFORT [None]
  - OROPHARYNGEAL PAIN [None]
  - THROAT IRRITATION [None]
  - TONSILLAR DISORDER [None]
